FAERS Safety Report 9800030 (Version 1)
Quarter: 2014Q1

REPORT INFORMATION
  Report Type: Spontaneous
  Country: US (occurrence: US)
  Receive Date: 20140106
  Receipt Date: 20140106
  Transmission Date: 20141002
  Serious: Yes (Hospitalization)
  Sender: FDA-Public Use
  Company Number: US-GILEAD-2010-0032071

PATIENT
  Sex: Female
  Weight: 99.79 kg

DRUGS (10)
  1. LETAIRIS [Suspect]
     Indication: PULMONARY ARTERIAL HYPERTENSION
     Route: 048
     Dates: start: 20100831
  2. ALBUTEROL [Concomitant]
  3. LORAZEPAM [Concomitant]
  4. IMDUR [Concomitant]
  5. GLIPIZIDE [Concomitant]
  6. METFORMIN [Concomitant]
  7. VICODIN ES [Concomitant]
  8. VALIUM [Concomitant]
  9. LIPITOR [Concomitant]
  10. POTASSIUM [Concomitant]

REACTIONS (1)
  - Fluid retention [Unknown]
